FAERS Safety Report 9209499 (Version 1)
Quarter: 2013Q2

REPORT INFORMATION
  Report Type: Spontaneous
  Country: US (occurrence: None)
  Receive Date: 20130403
  Receipt Date: 20130403
  Transmission Date: 20140414
  Serious: Yes (Life-Threatening, Hospitalization, Disabling)
  Sender: FDA-Public Use
  Company Number: None

PATIENT
  Age: 56 Year
  Sex: Male
  Weight: 104.33 kg

DRUGS (1)
  1. AMBIEN [Suspect]
     Indication: INSOMNIA
     Route: 048
     Dates: start: 2010, end: 20110103

REACTIONS (6)
  - Road traffic accident [None]
  - Legal problem [None]
  - Upper limb fracture [None]
  - Tooth loss [None]
  - Memory impairment [None]
  - Somnambulism [None]
